FAERS Safety Report 18771877 (Version 1)
Quarter: 2021Q1

REPORT INFORMATION
  Report Type: Spontaneous
  Country: DE (occurrence: DE)
  Receive Date: 20210121
  Receipt Date: 20210121
  Transmission Date: 20210419
  Serious: No
  Sender: FDA-Public Use
  Company Number: DE-SHIRE-DE201802439

PATIENT

DRUGS (4)
  1. INTUNIV [Suspect]
     Active Substance: GUANFACINE HYDROCHLORIDE
     Dosage: 3 MG, 1 EXTENDED RELEASE TABLET EVERY MORNING
     Route: 065
     Dates: start: 20170112
  2. INTUNIV [Suspect]
     Active Substance: GUANFACINE HYDROCHLORIDE
     Dosage: 4 MG, 1 EXTENDED RELEASE TABLET EVERY MORNING
     Route: 065
     Dates: start: 20170303, end: 20180427
  3. MEDIKINET RETARD [Concomitant]
     Active Substance: METHYLPHENIDATE
     Indication: PRODUCT USED FOR UNKNOWN INDICATION
  4. INTUNIV [Suspect]
     Active Substance: GUANFACINE HYDROCHLORIDE
     Indication: ATTENTION DEFICIT HYPERACTIVITY DISORDER
     Dosage: 1 MG, 1 EXTENDED RELEASE TABLET EVERY MORNING
     Route: 065
     Dates: start: 20161215

REACTIONS (3)
  - Peripheral coldness [Unknown]
  - Skin discolouration [Unknown]
  - Raynaud^s phenomenon [Recovered/Resolved]

NARRATIVE: CASE EVENT DATE: 20180125
